FAERS Safety Report 20656391 (Version 2)
Quarter: 2022Q2

REPORT INFORMATION
  Report Type: Spontaneous
  Country: FR (occurrence: FR)
  Receive Date: 20220331
  Receipt Date: 20220418
  Transmission Date: 20220721
  Serious: Yes (Life-Threatening)
  Sender: FDA-Public Use
  Company Number: FR-AFSSAPS-PO20220713

PATIENT
  Age: 56 Year
  Sex: Female
  Weight: 54 kg

DRUGS (5)
  1. FLUOXETINE [Suspect]
     Active Substance: FLUOXETINE HYDROCHLORIDE
     Indication: Product used for unknown indication
     Dosage: 20 MILLIGRAM, DAILY
     Route: 048
  2. KARDEGIC [Suspect]
     Active Substance: ASPIRIN DL-LYSINE
     Indication: Stent placement
     Dosage: 1 DOSAGE FORM, DAILY
     Route: 048
     Dates: start: 20220217, end: 20220221
  3. TICAGRELOR [Suspect]
     Active Substance: TICAGRELOR
     Indication: Stent placement
     Dosage: 2 DOSAGE FORM, DAILY
     Route: 048
     Dates: start: 20220221, end: 20220222
  4. HEPARIN [Suspect]
     Active Substance: HEPARIN SODIUM
     Indication: Stent placement
     Dosage: 4000 INTERNATIONAL UNIT, UNK
     Route: 042
     Dates: start: 20220222, end: 20220222
  5. ASPIRIN DL-LYSINE [Suspect]
     Active Substance: ASPIRIN DL-LYSINE
     Indication: Stent placement
     Dosage: 4000 INTERNATIONAL UNIT, UNK
     Route: 042
     Dates: start: 20220222, end: 20220222

REACTIONS (1)
  - Cerebral haemorrhage [Recovering/Resolving]

NARRATIVE: CASE EVENT DATE: 20220223
